FAERS Safety Report 9033009 (Version 1)
Quarter: 2013Q1

REPORT INFORMATION
  Report Type: Spontaneous
  Country: IT (occurrence: None)
  Receive Date: 20130110
  Receipt Date: 20130110
  Transmission Date: 20140127
  Serious: Yes (Hospitalization)
  Sender: FDA-Public Use
  Company Number: 2012-23405

PATIENT
  Age: 86 Year
  Sex: Male

DRUGS (7)
  1. SERTRALINE HYDROCHLORIDE (UNKNOWN) (SERTRALINE HYDROCHLORIDE) UNK, UNKUNK [Suspect]
     Indication: DEPRESSION
     Dosage: 1 DOSE UNIT, ORAL
     Route: 048
     Dates: start: 20121215, end: 20121227
  2. COUMADIN /00627701/(COUMARIN) TABLET, 5MG [Suspect]
     Indication: PRODUCT USED FOR UNKNOWN INDICATION
     Dosage: 1 DOSAGE UNIT AS NEEDED, 30 TABLETS, ORAL
     Route: 048
     Dates: start: 20120101, end: 20121221
  3. AMIODAR (AMIODARONE HYDROCHLORIDE) TABLET, 200MG [Suspect]
     Indication: PRODUCT USED FOR UNKNOWN INDICATION
     Dosage: 1 DOSAGE UNIT, DAILY, 20 TABLETS, ORAL
     Route: 048
     Dates: start: 20120101, end: 20121227
  4. LASIX /00032601/ (FUROSEMIDE) TABLET [Concomitant]
  5. DIAMOX /00016901/ (ACETAZOLAMIDE) TABLET [Concomitant]
  6. LUVION /00252501/ (CANRENOIC ACID) HARD CAPSULE [Concomitant]
  7. LEVOCARNITINE (LEVOCARNITINE) [Concomitant]

REACTIONS (2)
  - Haematuria [None]
  - International normalised ratio increased [None]
